FAERS Safety Report 10497303 (Version 2)
Quarter: 2014Q4

REPORT INFORMATION
  Report Type: Other
  Country: US (occurrence: US)
  Receive Date: 20141006
  Receipt Date: 20141006
  Transmission Date: 20150528
  Serious: No
  Sender: FDA-Public Use
  Company Number: US-LUPIN PHARMACEUTICALS INC.-2014-01206

PATIENT
  Sex: Female

DRUGS (2)
  1. DULOXETINE DELAYED-RELEASE 60 MG CAPSULES USP [Suspect]
     Active Substance: DULOXETINE
     Indication: FIBROMYALGIA
     Dosage: 60MG AT NIGHT
     Route: 065
  2. DULOXETINE DELAYED-RELEASE 60 MG CAPSULES USP [Suspect]
     Active Substance: DULOXETINE
     Indication: MIGRAINE
     Route: 065

REACTIONS (11)
  - Abnormal dreams [Unknown]
  - Flushing [Unknown]
  - Muscle spasms [Unknown]
  - Asthenia [Unknown]
  - Rash [Unknown]
  - Product substitution issue [Unknown]
  - Product use issue [Unknown]
  - Palpitations [Unknown]
  - Myalgia [Unknown]
  - Blood sodium decreased [Unknown]
  - Insomnia [Unknown]
